FAERS Safety Report 6314027-6 (Version None)
Quarter: 2009Q3

REPORT INFORMATION
  Report Type: 
  Country: None (occurrence: None)
  Receive Date: 20090818
  Receipt Date: 20000309
  Transmission Date: 20100115
  Serious: Yes (Death)
  Sender: FDA-Public Use
  Company Number: PHEH2000US03672

PATIENT
  Sex: Male

DRUGS (3)
  1. TEGRETOL [Suspect]
     Dosage: MOTHER DOSE: 600 MG QD
     Route: 064
  2. FOLIC ACID [Concomitant]
     Route: 064
  3. VITAMINS [Concomitant]
     Route: 064

REACTIONS (10)
  - CARDIAC ARREST [None]
  - CEREBROVASCULAR ACCIDENT [None]
  - CONGENITAL PULMONARY VALVE ATRESIA [None]
  - CONGENITAL TRICUSPID VALVE ATRESIA [None]
  - HYPOPLASTIC LEFT HEART SYNDROME [None]
  - MATERNAL DRUGS AFFECTING FOETUS [None]
  - PATENT DUCTUS ARTERIOSUS [None]
  - PULMONARY ARTERY STENOSIS [None]
  - SURGERY [None]
  - UNIVENTRICULAR HEART [None]
